FAERS Safety Report 9339783 (Version 1)
Quarter: 2013Q2

REPORT INFORMATION
  Report Type: Spontaneous
  Country: GB (occurrence: None)
  Receive Date: 20130605
  Receipt Date: 20130605
  Transmission Date: 20140414
  Serious: Yes (Hospitalization)
  Sender: FDA-Public Use
  Company Number: FK201301827

PATIENT
  Age: 58 Year
  Sex: Male

DRUGS (21)
  1. METHOTREXATE [Suspect]
     Indication: RHEUMATOID ARTHRITIS
     Dates: start: 2005, end: 201011
  2. ACETYLSALICYLIC ACID [Suspect]
     Route: 048
  3. ETANERCEPT [Suspect]
     Indication: RHEUMATOID ARTHRITIS
     Dates: start: 20120420, end: 20120519
  4. ISMN [Suspect]
  5. NICORANDIL [Suspect]
     Dosage: 30 MG, 2 IN 1 D, ORAL
     Route: 048
  6. CANDESARTAN [Concomitant]
  7. INSULIN (INSULIN) [Concomitant]
  8. AMITRIPTYLINE (AMITRIPTYLINE) [Concomitant]
  9. AMLODIPINE (AMLODIPINE) [Concomitant]
  10. ATORVASTATIN CALCIUM (ATORVASTATIN CALCIUM) [Concomitant]
  11. BISOPROLOL (BISOPROLOL) [Concomitant]
  12. FUROSEMIDE (FUROSEMIDE) [Concomitant]
  13. GABAPENTIN (GABAPENTIN) [Concomitant]
  14. GTN [Concomitant]
  15. LIRAGLUTIDE [Concomitant]
  16. MORPHINE SULFATE [Concomitant]
  17. NIZATIDINE [Concomitant]
  18. ORAMORPH [Concomitant]
  19. PIZOTIFEN [Concomitant]
  20. RIVAROXABAN [Concomitant]
  21. SALBUTAMOL (SALBUTAMOL) [Concomitant]

REACTIONS (18)
  - Myocardial ischaemia [None]
  - Catheter site cellulitis [None]
  - Cellulitis [None]
  - Chest pain [None]
  - Angina pectoris [None]
  - Drug ineffective [None]
  - Staphylococcal infection [None]
  - Aortic valve disease mixed [None]
  - Pyrexia [None]
  - Chills [None]
  - Thrombocytopenia [None]
  - Tonsillar ulcer [None]
  - Troponin T increased [None]
  - Device lead damage [None]
  - Drug intolerance [None]
  - Headache [None]
  - Nausea [None]
  - Dizziness [None]
